FAERS Safety Report 5055497-3 (Version None)
Quarter: 2006Q3

REPORT INFORMATION
  Report Type: 
  Country: None (occurrence: None)
  Receive Date: 20060717
  Receipt Date: 20060717
  Transmission Date: 20061208
  Serious: Yes (Hospitalization)
  Sender: FDA-Public Use
  Company Number: None

PATIENT
  Age: 52 Year
  Sex: Female
  Weight: 90 kg

DRUGS (16)
  1. OXYCODONE HCL [Suspect]
     Indication: PROCEDURAL PAIN
     Dosage: SEE IMAGE
     Dates: start: 20060215, end: 20060216
  2. LASIX [Concomitant]
  3. ULTRAM [Concomitant]
  4. REQUIP [Concomitant]
  5. TRAZODONE HCL [Concomitant]
  6. POTASSIUM [Concomitant]
  7. ATENOLOL [Concomitant]
  8. SINGULAIR [Concomitant]
  9. SKELAXIN [Concomitant]
  10. FOLIC ACID [Concomitant]
  11. PROTONIX [Concomitant]
  12. ASPIRIN [Concomitant]
  13. ALBUTEROL SPIROS [Concomitant]
  14. ADVAIR DISKUS 100/50 [Concomitant]
  15. PROVIGIL [Concomitant]
  16. ENOXAPARIN SODIUM [Concomitant]

REACTIONS (1)
  - HYPOTENSION [None]
